FAERS Safety Report 11989182 (Version 1)
Quarter: 2016Q1

REPORT INFORMATION
  Report Type: Report from Study
  Country: US (occurrence: US)
  Receive Date: 20160202
  Receipt Date: 20160202
  Transmission Date: 20160526
  Serious: Yes (Hospitalization)
  Sender: FDA-Public Use
  Company Number: US-BIOGEN-2015BI147267

PATIENT
  Age: 37 Year
  Sex: Female

DRUGS (3)
  1. PLEGRIDY [Suspect]
     Active Substance: PEGINTERFERON BETA-1A
     Route: 058
     Dates: start: 20151027
  2. PLEGRIDY [Suspect]
     Active Substance: PEGINTERFERON BETA-1A
     Route: 058
     Dates: start: 20151027
  3. PLEGRIDY [Suspect]
     Active Substance: PEGINTERFERON BETA-1A
     Indication: MULTIPLE SCLEROSIS
     Dosage: EXP 31MAR2017
     Route: 058
     Dates: start: 20151027

REACTIONS (29)
  - Rash generalised [Not Recovered/Not Resolved]
  - Gingival swelling [Recovered/Resolved]
  - Dyspnoea [Not Recovered/Not Resolved]
  - Peripheral swelling [Not Recovered/Not Resolved]
  - Injection site reaction [Not Recovered/Not Resolved]
  - Erythema [Recovered/Resolved]
  - Injection site discolouration [Not Recovered/Not Resolved]
  - Arthralgia [Not Recovered/Not Resolved]
  - Depression [Not Recovered/Not Resolved]
  - Pyrexia [Recovered/Resolved]
  - Hypophagia [Unknown]
  - Pain [Unknown]
  - Musculoskeletal chest pain [Unknown]
  - Influenza like illness [Recovered/Resolved]
  - Medical device site erythema [Recovered/Resolved]
  - Neck pain [Not Recovered/Not Resolved]
  - Injection site rash [Not Recovered/Not Resolved]
  - Gingival bleeding [Recovered/Resolved]
  - Injection site erythema [Recovered/Resolved]
  - Vomiting [Recovered/Resolved]
  - Gait disturbance [Not Recovered/Not Resolved]
  - Bronchitis [Not Recovered/Not Resolved]
  - Dizziness [Not Recovered/Not Resolved]
  - Mobility decreased [Not Recovered/Not Resolved]
  - Renal pain [Recovered/Resolved]
  - Oropharyngeal pain [Recovered/Resolved]
  - Headache [Unknown]
  - Pulmonary pain [Not Recovered/Not Resolved]
  - Cough [Unknown]

NARRATIVE: CASE EVENT DATE: 2015
